FAERS Safety Report 24270438 (Version 1)
Quarter: 2024Q3

REPORT INFORMATION
  Report Type: Spontaneous
  Country: GB (occurrence: GB)
  Receive Date: 20240830
  Receipt Date: 20240830
  Transmission Date: 20241016
  Serious: Yes (Hospitalization)
  Sender: B BRAUN
  Company Number: GB-B.Braun Medical Inc.-2161061

PATIENT
  Sex: Male

DRUGS (2)
  1. ACETAMINOPHEN [Suspect]
     Active Substance: ACETAMINOPHEN
  2. CLOZARIL [Suspect]
     Active Substance: CLOZAPINE

REACTIONS (2)
  - Lower respiratory tract infection [Unknown]
  - Overdose [Unknown]
